FAERS Safety Report 6671828-2 (Version None)
Quarter: 2010Q2

REPORT INFORMATION
  Report Type: 
  Country: None (occurrence: None)
  Receive Date: 20100407
  Receipt Date: 20100326
  Transmission Date: 20101027
  Serious: Yes (Life-Threatening, Hospitalization, Disabling, Other)
  Sender: FDA-Public Use
  Company Number: NO-PFIZER INC-2009302083

PATIENT
  Sex: Female

DRUGS (2)
  1. HYDROXYZINE HCL [Suspect]
     Indication: SOMNOLENCE
     Dosage: UNK
     Route: 048
     Dates: start: 20030101
  2. HYDROXYZINE HCL [Suspect]
     Indication: HYPERSENSITIVITY

REACTIONS (9)
  - ABNORMAL WEIGHT GAIN [None]
  - ATRIAL FIBRILLATION [None]
  - BLOOD PRESSURE INCREASED [None]
  - DIZZINESS [None]
  - FATIGUE [None]
  - INTRACARDIAC THROMBUS [None]
  - PALPITATIONS [None]
  - PRESYNCOPE [None]
  - SUPRAVENTRICULAR TACHYCARDIA [None]
